FAERS Safety Report 15960688 (Version 1)
Quarter: 2019Q1

REPORT INFORMATION
  Report Type: Spontaneous
  Country: RU (occurrence: RU)
  Receive Date: 20190214
  Receipt Date: 20190214
  Transmission Date: 20190417
  Serious: Yes (Hospitalization)
  Sender: FDA-Public Use
  Company Number: RU-SA-2019SA037704

PATIENT
  Age: 29 Year
  Sex: Male
  Weight: 118 kg

DRUGS (4)
  1. INDAPAMIDE. [Concomitant]
     Active Substance: INDAPAMIDE
     Route: 048
  2. TOUJEO [Suspect]
     Active Substance: INSULIN GLARGINE
     Indication: TYPE 1 DIABETES MELLITUS
     Dosage: 44 U, QD
     Route: 058
     Dates: start: 20170301, end: 20181101
  3. APIDRA [Concomitant]
     Active Substance: INSULIN GLULISINE
     Indication: TYPE 1 DIABETES MELLITUS
     Dosage: UNK
     Route: 058
     Dates: start: 20160108
  4. PERINEVA [Concomitant]
     Active Substance: PERINDOPRIL ERBUMINE
     Route: 048

REACTIONS (2)
  - Disease progression [Recovering/Resolving]
  - Blood glucose increased [Recovering/Resolving]
